FAERS Safety Report 7692075-1 (Version None)
Quarter: 2011Q3

REPORT INFORMATION
  Report Type: 
  Country: None (occurrence: None)
  Receive Date: 20110818
  Receipt Date: 20110808
  Transmission Date: 20111222
  Serious: Yes (Other)
  Sender: FDA-Public Use
  Company Number: PHHY2011TR72199

PATIENT
  Age: 43 Year
  Sex: Male

DRUGS (1)
  1. WARFARIN SODIUM [Suspect]
     Dosage: 7.5 MG, DAILY

REACTIONS (14)
  - KIDNEY ENLARGEMENT [None]
  - PROTEINURIA [None]
  - ABDOMINAL PAIN [None]
  - VENTRICULAR FIBRILLATION [None]
  - URINARY TRACT INFECTION [None]
  - RENAL HAEMATOMA [None]
  - RENAL FAILURE ACUTE [None]
  - OLIGURIA [None]
  - ANURIA [None]
  - HAEMATURIA [None]
  - URETERIC HAEMORRHAGE [None]
  - HYDRONEPHROSIS [None]
  - ABDOMINAL TENDERNESS [None]
  - BACK PAIN [None]
